FAERS Safety Report 8108510-0 (Version None)
Quarter: 2012Q1

REPORT INFORMATION
  Report Type: 
  Country: None (occurrence: None)
  Receive Date: 20120202
  Receipt Date: 20120127
  Transmission Date: 20120608
  Serious: Yes (Hospitalization)
  Sender: FDA-Public Use
  Company Number: PHHO2011US020479

PATIENT
  Sex: Female
  Weight: 78.005 kg

DRUGS (1)
  1. AFINITOR [Suspect]
     Indication: METASTATIC RENAL CELL CARCINOMA
     Dosage: 10 MG, UNK
     Dates: start: 20100330, end: 20111203

REACTIONS (2)
  - HYPOXIA [None]
  - PNEUMONIA PRIMARY ATYPICAL [None]
